FAERS Safety Report 8264905-6 (Version None)
Quarter: 2012Q2

REPORT INFORMATION
  Report Type: 
  Country: None (occurrence: None)
  Receive Date: 20120406
  Receipt Date: 20111125
  Transmission Date: 20120825
  Serious: Yes (Other)
  Sender: FDA-Public Use
  Company Number: DE-UCBSA-044482

PATIENT

DRUGS (1)
  1. CIMZIA [Suspect]
     Dosage: UNKNOWN DOSAGE

REACTIONS (1)
  - MYOCARDIAL INFARCTION [None]
